FAERS Safety Report 9972712 (Version 1)
Quarter: 2014Q1

REPORT INFORMATION
  Report Type: Spontaneous
  Country: US (occurrence: None)
  Receive Date: 20140127
  Receipt Date: 20140127
  Transmission Date: 20141002
  Serious: Yes (Hospitalization, Other)
  Sender: FDA-Public Use
  Company Number: 1206577

PATIENT
  Sex: Male

DRUGS (3)
  1. RITUXAN [Suspect]
     Indication: CHRONIC LYMPHOCYTIC LEUKAEMIA
  2. CYTOXAN (CYCLOPHOSPHAMIDE) [Concomitant]
  3. FLUDARABINE (FLUDARABINE PHOSPHATE) [Concomitant]

REACTIONS (3)
  - Neutropenia [None]
  - Pancytopenia [None]
  - Mouth ulceration [None]
